FAERS Safety Report 12396103 (Version 2)
Quarter: 2016Q2

REPORT INFORMATION
  Report Type: Spontaneous
  Country: US (occurrence: US)
  Receive Date: 20160524
  Receipt Date: 20160524
  Transmission Date: 20160815
  Serious: No
  Sender: FDA-Public Use
  Company Number: US-CIPLA LTD.-2016US05446

PATIENT

DRUGS (1)
  1. TOPIRAMATE. [Suspect]
     Active Substance: TOPIRAMATE
     Indication: HEAD DISCOMFORT
     Dosage: 200 MG, QD
     Route: 048

REACTIONS (8)
  - Local swelling [Recovering/Resolving]
  - Insomnia [Recovering/Resolving]
  - Dysarthria [Recovering/Resolving]
  - Non-cardiac chest pain [Recovering/Resolving]
  - Dry mouth [Recovering/Resolving]
  - Gait disturbance [Recovering/Resolving]
  - Pharyngitis [Recovering/Resolving]
  - Burning sensation [Recovering/Resolving]
